FAERS Safety Report 6543410-9 (Version None)
Quarter: 2010Q1

REPORT INFORMATION
  Report Type: 
  Country: None (occurrence: None)
  Receive Date: 20100120
  Receipt Date: 20100111
  Transmission Date: 20100710
  Serious: Yes (Hospitalization)
  Sender: FDA-Public Use
  Company Number: US-ASTRAZENECA-2010SE01247

PATIENT
  Age: 61 Year
  Sex: Male

DRUGS (17)
  1. CASODEX [Suspect]
     Indication: PROSTATE CANCER
     Route: 048
     Dates: start: 20090914
  2. DOCETAXEL [Suspect]
     Indication: PROSTATE CANCER
     Route: 042
     Dates: start: 20090916, end: 20091223
  3. LUPRON [Suspect]
     Indication: PROSTATE CANCER
     Route: 030
     Dates: start: 20090916
  4. ELAVIL [Concomitant]
     Route: 065
  5. FLOMAX [Concomitant]
     Route: 065
  6. ZOLOFT [Concomitant]
     Route: 065
  7. TRIAMCINOLONE [Concomitant]
     Route: 065
  8. METFORMIN [Concomitant]
     Route: 065
  9. CLOPIDOGREL [Concomitant]
     Route: 065
  10. HYDROCHLOROTHIAZIDE [Concomitant]
     Route: 065
  11. ASPIRIN [Concomitant]
     Route: 065
  12. ATORVASTATIN [Concomitant]
     Route: 065
  13. GLIMEPIRIDE [Concomitant]
     Route: 065
  14. IMDUR [Concomitant]
     Route: 065
  15. BENAZEPRIL HYDROCHLORIDE [Concomitant]
     Route: 065
  16. CARVEDILOL [Concomitant]
     Route: 065
  17. TOLTERODINE TARTRATE [Concomitant]
     Route: 065

REACTIONS (5)
  - BACK PAIN [None]
  - DYSPNOEA [None]
  - DYSPNOEA EXERTIONAL [None]
  - HYPOXIA [None]
  - INTERSTITIAL LUNG DISEASE [None]
